FAERS Safety Report 5587790-X (Version None)
Quarter: 2007Q4

REPORT INFORMATION
  Report Type: 
  Country: None (occurrence: None)
  Receive Date: 20071205
  Receipt Date: 20070910
  Transmission Date: 20080405
  Serious: Yes (Other)
  Sender: FDA-Public Use
  Company Number: E3810-01247-SPO-US

PATIENT
  Sex: Female

DRUGS (3)
  1. ACIPHEX [Suspect]
     Indication: DYSPEPSIA
     Dosage: ORAL ; ORAL ; ORAL
     Route: 048
     Dates: start: 20040101, end: 20050101
  2. ACIPHEX [Suspect]
     Indication: DYSPEPSIA
     Dosage: ORAL ; ORAL ; ORAL
     Route: 048
     Dates: start: 20070501, end: 20070501
  3. ACIPHEX [Suspect]
     Indication: DYSPEPSIA
     Dosage: ORAL ; ORAL ; ORAL
     Route: 048
     Dates: start: 20070627, end: 20070627

REACTIONS (1)
  - HYPERSENSITIVITY [None]
